FAERS Safety Report 7610122-X (Version None)
Quarter: 2011Q3

REPORT INFORMATION
  Report Type: 
  Country: None (occurrence: None)
  Receive Date: 20110715
  Receipt Date: 20110705
  Transmission Date: 20111222
  Serious: No
  Sender: FDA-Public Use
  Company Number: US-BIOGENIDEC-2011BI017115

PATIENT
  Age: 33 Year
  Sex: Female

DRUGS (1)
  1. TYSABRI [Suspect]
     Indication: MULTIPLE SCLEROSIS
     Route: 042
     Dates: start: 20110420

REACTIONS (6)
  - FATIGUE [None]
  - DRY SKIN [None]
  - MENTAL IMPAIRMENT [None]
  - DRUG EFFECT DECREASED [None]
  - PAIN [None]
  - DRY MOUTH [None]
